FAERS Safety Report 17471546 (Version 1)
Quarter: 2020Q1

REPORT INFORMATION
  Report Type: Spontaneous
  Country: US (occurrence: US)
  Receive Date: 20200228
  Receipt Date: 20200228
  Transmission Date: 20200409
  Serious: No
  Sender: FDA-Public Use
  Company Number: US-ASTRAZENECA-2020SE17345

PATIENT
  Age: 378 Month
  Sex: Female

DRUGS (2)
  1. PULMICORT FLEXHALER [Suspect]
     Active Substance: BUDESONIDE
     Indication: ASTHMA
     Route: 055
     Dates: start: 201912
  2. PREDNISONE. [Concomitant]
     Active Substance: PREDNISONE
     Indication: ASTHMA
     Route: 048

REACTIONS (4)
  - Exposure during pregnancy [Not Recovered/Not Resolved]
  - Device issue [Unknown]
  - Asthma [Unknown]
  - Product dose omission [Unknown]

NARRATIVE: CASE EVENT DATE: 201912
